FAERS Safety Report 4360546-1 (Version None)
Quarter: 2004Q2

REPORT INFORMATION
  Report Type: 
  Country: None (occurrence: None)
  Receive Date: 20040519
  Receipt Date: 20030729
  Transmission Date: 20050107
  Serious: Yes (Hospitalization)
  Sender: FDA-Public Use
  Company Number: JP-ROCHE-343516

PATIENT
  Age: 60 Year
  Sex: Female
  Weight: 50.7 kg

DRUGS (4)
  1. PEG-INTERFERON ALFA 2A (RO 25-8310) [Suspect]
     Route: 058
     Dates: start: 20030117, end: 20030723
  2. RIBAVIRIN [Suspect]
     Route: 048
     Dates: start: 20030117, end: 20030728
  3. TRIMEBUTINE MALEATE [Concomitant]
     Dates: start: 20020823
  4. BECLOMETHASONE DIPROPIONATE [Concomitant]
     Dates: start: 20030523

REACTIONS (15)
  - ADENOCARCINOMA [None]
  - ADHESION [None]
  - BILE DUCT CANCER [None]
  - CHOLECYSTITIS [None]
  - CHOLELITHIASIS [None]
  - DUODENAL NEOPLASM [None]
  - DUODENAL STENOSIS [None]
  - EROSIVE OESOPHAGITIS [None]
  - GASTROINTESTINAL HAEMORRHAGE [None]
  - HEPATIC FUNCTION ABNORMAL [None]
  - MALAISE [None]
  - PYREXIA [None]
  - REFLUX OESOPHAGITIS [None]
  - SMALL INTESTINE CARCINOMA [None]
  - VOMITING [None]
